FAERS Safety Report 6642904-5 (Version None)
Quarter: 2010Q1

REPORT INFORMATION
  Report Type: 
  Country: None (occurrence: None)
  Receive Date: 20100319
  Receipt Date: 20100312
  Transmission Date: 20100710
  Serious: Yes (Other)
  Sender: FDA-Public Use
  Company Number: GB-CEPHALON-2009029721

PATIENT
  Sex: Female
  Weight: 139 kg

DRUGS (5)
  1. PROVIGIL [Suspect]
     Indication: NARCOLEPSY
     Route: 048
     Dates: start: 20081031, end: 20091001
  2. DIAMORPHINE [Concomitant]
  3. CYCLIZINE [Concomitant]
     Dates: start: 20091228
  4. DICLOFENAC [Concomitant]
     Dates: start: 20091228
  5. CO-AMOXICLAV [Concomitant]

REACTIONS (4)
  - AMNIOTIC FLUID VOLUME DECREASED [None]
  - DRUG EXPOSURE DURING PREGNANCY [None]
  - FOETAL DISTRESS SYNDROME [None]
  - PREMATURE LABOUR [None]
